FAERS Safety Report 4528748-9 (Version None)
Quarter: 2004Q4

REPORT INFORMATION
  Report Type: 
  Country: None (occurrence: None)
  Receive Date: 20041216
  Receipt Date: 20040614
  Transmission Date: 20050328
  Serious: Yes (Other)
  Sender: FDA-Public Use
  Company Number: JP-ROCHE-371204

PATIENT
  Age: 1 Year
  Sex: Male
  Weight: 12 kg

DRUGS (8)
  1. ROCEPHIN [Suspect]
     Indication: PNEUMONIA
     Route: 042
     Dates: start: 20040604, end: 20040605
  2. ROCEPHIN [Suspect]
     Route: 042
     Dates: start: 20040606, end: 20040606
  3. ZITHROMAX [Concomitant]
     Route: 048
     Dates: start: 20040604, end: 20040606
  4. ASTOMIN [Concomitant]
     Route: 048
     Dates: start: 20040604, end: 20040616
  5. PERIACTIN [Concomitant]
     Route: 048
     Dates: start: 20040604, end: 20040616
  6. MUCODYNE [Concomitant]
     Route: 048
     Dates: start: 20040604, end: 20040616
  7. HOKUNALIN [Concomitant]
     Dosage: FORMULATION: TAPE.
     Route: 061
     Dates: start: 20040604, end: 20040616
  8. NEOPHYLLIN [Concomitant]
     Route: 042
     Dates: start: 20040604, end: 20040607

REACTIONS (1)
  - PURPURA [None]
